FAERS Safety Report 14918652 (Version 1)
Quarter: 2018Q2

REPORT INFORMATION
  Report Type: Spontaneous
  Country: US (occurrence: US)
  Receive Date: 20180521
  Receipt Date: 20180521
  Transmission Date: 20180711
  Serious: No
  Sender: FDA-Public Use
  Company Number: US-PFIZER INC-2018200747

PATIENT
  Sex: Female

DRUGS (6)
  1. LYRICA [Suspect]
     Active Substance: PREGABALIN
     Indication: DIABETES MELLITUS
     Dosage: 100 MG, 1X/DAY (IN THE EVENING)
  2. LYRICA CR [Suspect]
     Active Substance: PREGABALIN
     Indication: NEUROPATHY PERIPHERAL
     Dosage: 330 MG, UNK
  3. LYRICA CR [Suspect]
     Active Substance: PREGABALIN
     Indication: CHEMOTHERAPY
  4. LYRICA [Suspect]
     Active Substance: PREGABALIN
     Indication: CHEMOTHERAPY
  5. LYRICA [Suspect]
     Active Substance: PREGABALIN
     Indication: NEUROPATHY PERIPHERAL
     Dosage: 300 MG, 1X/DAY
  6. LYRICA CR [Suspect]
     Active Substance: PREGABALIN
     Indication: DIABETES MELLITUS

REACTIONS (2)
  - Intentional product use issue [Unknown]
  - Drug effect decreased [Unknown]
